FAERS Safety Report 25866769 (Version 1)
Quarter: 2025Q3

REPORT INFORMATION
  Report Type: Spontaneous
  Country: US (occurrence: US)
  Receive Date: 20250930
  Receipt Date: 20250930
  Transmission Date: 20251020
  Serious: No
  Sender: BAUSCH AND LOMB
  Company Number: US-BAUSCHBL-2025BNL028850

PATIENT
  Age: 70 Year
  Sex: Female

DRUGS (1)
  1. LUMIFY PRESERVATIVE FREE EYE DROPS [Suspect]
     Active Substance: BRIMONIDINE TARTRATE
     Indication: Product used for unknown indication
     Route: 047
     Dates: start: 20250919

REACTIONS (8)
  - Oedema peripheral [Unknown]
  - Pain [Unknown]
  - Nail injury [Unknown]
  - Nail bed bleeding [Unknown]
  - Pain in extremity [Unknown]
  - Limb injury [Unknown]
  - Ill-defined disorder [Unknown]
  - Product package associated injury [Unknown]

NARRATIVE: CASE EVENT DATE: 20250901
